FAERS Safety Report 6830030-1 (Version None)
Quarter: 2010Q3

REPORT INFORMATION
  Report Type: 
  Country: None (occurrence: None)
  Receive Date: 20100711
  Receipt Date: 20100428
  Transmission Date: 20110219
  Serious: No
  Sender: FDA-Public Use
  Company Number: US-ALLERGAN-1005574US

PATIENT
  Age: 47 Year
  Sex: Female

DRUGS (5)
  1. LATISSE [Suspect]
     Indication: GROWTH OF EYELASHES
     Dosage: 1 GTT, QHS
     Route: 061
     Dates: start: 20100426, end: 20100426
  2. NORTREL 1/35-28 [Concomitant]
     Indication: CONTRACEPTION
     Dosage: UNK
  3. OXYBUTYNIN CHLORIDE [Concomitant]
     Dosage: UNK
  4. DESIPRAMINE HCL [Concomitant]
     Dosage: UNK
  5. OMEPRAZOLE [Concomitant]
     Dosage: UNK

REACTIONS (3)
  - ERYTHEMA OF EYELID [None]
  - EYE DISCHARGE [None]
  - EYELID OEDEMA [None]
